FAERS Safety Report 20330777 (Version 2)
Quarter: 2022Q1

REPORT INFORMATION
  Report Type: Spontaneous
  Country: US (occurrence: US)
  Receive Date: 20220113
  Receipt Date: 20220208
  Transmission Date: 20220423
  Serious: Yes (Death, Hospitalization, Other)
  Sender: FDA-Public Use
  Company Number: US-AMGEN-USASP2022002793

PATIENT

DRUGS (4)
  1. FILGRASTIM [Suspect]
     Active Substance: FILGRASTIM
     Indication: Prophylaxis
     Dosage: 300 MICROGRAM
     Route: 065
  2. FILGRASTIM [Suspect]
     Active Substance: FILGRASTIM
     Dosage: 480 MICROGRAM
     Route: 065
  3. FILGRASTIM [Suspect]
     Active Substance: FILGRASTIM
     Dosage: 600 MICROGRAM
     Route: 065
  4. FILGRASTIM [Suspect]
     Active Substance: FILGRASTIM
     Dosage: 960 MICROGRAM
     Route: 065

REACTIONS (7)
  - Death [Fatal]
  - Transplantation complication [Fatal]
  - Hospitalisation [Unknown]
  - Engraftment syndrome [Unknown]
  - Febrile neutropenia [Unknown]
  - Packed red blood cell transfusion [Unknown]
  - Antibiotic therapy [Unknown]
